FAERS Safety Report 20476280 (Version 2)
Quarter: 2022Q1

REPORT INFORMATION
  Report Type: Report from Study
  Country: US (occurrence: US)
  Receive Date: 20220215
  Receipt Date: 20220314
  Transmission Date: 20220423
  Serious: Yes (Other)
  Sender: FDA-Public Use
  Company Number: US-CELGENE-USA-20220203391

PATIENT
  Sex: Male
  Weight: 83.536 kg

DRUGS (3)
  1. REVLIMID [Suspect]
     Active Substance: LENALIDOMIDE
     Indication: Plasma cell myeloma
     Dosage: 25 MILLIGRAM
     Route: 048
     Dates: start: 201805
  2. REVLIMID [Suspect]
     Active Substance: LENALIDOMIDE
     Indication: Autologous bone marrow transplantation therapy
     Dosage: 10 MG
     Route: 048
     Dates: start: 20190731
  3. ASPIRIN [Concomitant]
     Active Substance: ASPIRIN
     Indication: Product used for unknown indication
     Route: 065

REACTIONS (2)
  - COVID-19 [Unknown]
  - Bronchitis [Unknown]

NARRATIVE: CASE EVENT DATE: 20220101
